FAERS Safety Report 7776463-0 (Version None)
Quarter: 2011Q3

REPORT INFORMATION
  Report Type: 
  Country: None (occurrence: None)
  Receive Date: 20110926
  Receipt Date: 20110913
  Transmission Date: 20111222
  Serious: Yes (Hospitalization, Other)
  Sender: FDA-Public Use
  Company Number: US-ELI_LILLY_AND_COMPANY-US201008007138

PATIENT
  Sex: Female

DRUGS (17)
  1. FORTEO [Suspect]
     Dosage: 20 UG, QD
  2. FORTEO [Suspect]
     Dosage: 20 UG, QD
  3. FORTEO [Suspect]
     Dosage: 20 UG, QD
  4. PLAVIX [Concomitant]
  5. BIOTIN [Concomitant]
     Indication: ALOPECIA
  6. ATACAND [Concomitant]
  7. CALCIUM CARBONATE [Concomitant]
  8. VITAMIN D [Concomitant]
     Dosage: 50000 IU, MONTHLY (1/M)
  9. PREVACID [Concomitant]
  10. ANTIHYPERTENSIVES [Concomitant]
  11. MULTI-VITAMIN [Concomitant]
  12. FORTEO [Suspect]
     Indication: OSTEOPOROSIS
     Dosage: 20 UG, QD
     Dates: start: 20100601
  13. FISH OIL [Concomitant]
  14. SANCTURA [Concomitant]
  15. FORTEO [Suspect]
     Dosage: 20 UG, QD
  16. CELEBREX [Concomitant]
  17. TRIAMTERENE [Concomitant]

REACTIONS (12)
  - ARTHRALGIA [None]
  - PAIN IN EXTREMITY [None]
  - MUSCULOSKELETAL PAIN [None]
  - PANCREATITIS [None]
  - BONE PAIN [None]
  - OSTEOARTHRITIS [None]
  - FEELING ABNORMAL [None]
  - BLOOD CALCIUM INCREASED [None]
  - BILIARY DILATATION [None]
  - RIB FRACTURE [None]
  - NECK PAIN [None]
  - INJECTION SITE HAEMATOMA [None]
